FAERS Safety Report 8872966 (Version 1)
Quarter: 2012Q4

REPORT INFORMATION
  Report Type: 
  Country: US (occurrence: US)
  Receive Date: 20121026
  Receipt Date: 20121026
  Transmission Date: 20130627
  Serious: No
  Sender: FDA-Public Use
  Company Number: US-AMGEN-USASP2012050768

PATIENT
  Sex: Female

DRUGS (10)
  1. ENBREL [Suspect]
     Indication: PRODUCT USED FOR UNKNOWN INDICATION
     Dosage: 50 mg, qwk
  2. CALTRATE                           /00944201/ [Concomitant]
     Dosage: 600 UNK, UNK
  3. PLAQUENIL                          /00072602/ [Concomitant]
     Dosage: 200 mg, UNK
  4. METHOTREXATE [Concomitant]
     Dosage: 2.5 mg, UNK
  5. DIOVAN [Concomitant]
     Dosage: 160 mg, UNK
  6. IBUPROFEN [Concomitant]
     Dosage: 200 mg, UNK
  7. VITAMIN D /00107901/ [Concomitant]
     Dosage: 1000 unit, UNK
  8. PEPCID AC [Concomitant]
     Dosage: 20 mg, UNK
  9. FOLIC ACID [Concomitant]
     Dosage: 5 mg, UNK
  10. VITAMIN C                          /00008001/ [Concomitant]
     Dosage: 100 mg, UNK

REACTIONS (2)
  - Rash pruritic [Unknown]
  - Rash pustular [Unknown]
